FAERS Safety Report 25868671 (Version 4)
Quarter: 2025Q4

REPORT INFORMATION
  Report Type: Spontaneous
  Country: US (occurrence: US)
  Receive Date: 20251001
  Receipt Date: 20251222
  Transmission Date: 20260118
  Serious: Yes (Hospitalization)
  Sender: RECKITT BENCKISER
  Company Number: US-INDIVIOR US-INDV-152719-2024

PATIENT

DRUGS (24)
  1. SUBOXONE [Suspect]
     Active Substance: BUPRENORPHINE HYDROCHLORIDE\NALOXONE HYDROCHLORIDE
     Indication: Drug use disorder
     Dosage: 2 MILLIGRAM, QD
     Route: 060
     Dates: start: 20060531
  2. SUBOXONE [Suspect]
     Active Substance: BUPRENORPHINE HYDROCHLORIDE\NALOXONE HYDROCHLORIDE
     Dosage: 1 MILLIGRAM, QD (HALF FILM)
     Route: 060
  3. SUBOXONE [Suspect]
     Active Substance: BUPRENORPHINE HYDROCHLORIDE\NALOXONE HYDROCHLORIDE
     Indication: Drug use disorder
     Dosage: 2 MILLIGRAM, QD
     Route: 060
  4. SUBOXONE [Suspect]
     Active Substance: BUPRENORPHINE HYDROCHLORIDE\NALOXONE HYDROCHLORIDE
     Indication: Drug use disorder
     Dosage: 8 MILLIGRAM, QD
     Route: 060
     Dates: start: 20060531
  5. BUPRENORPHINE\NALOXONE [Suspect]
     Active Substance: BUPRENORPHINE\NALOXONE
     Indication: Drug use disorder
     Dosage: 2 MILLIGRAM, QD
     Route: 060
     Dates: start: 20181017
  6. BUPRENORPHINE\NALOXONE [Suspect]
     Active Substance: BUPRENORPHINE\NALOXONE
     Dosage: 4 MILLIGRAM, QD
     Route: 060
  7. BUPRENORPHINE\NALOXONE [Suspect]
     Active Substance: BUPRENORPHINE\NALOXONE
     Indication: Drug use disorder
     Dosage: 2 MILLIGRAM, QD
     Route: 060
     Dates: start: 20160607
  8. IBUPROFEN [Concomitant]
     Active Substance: IBUPROFEN
     Indication: Pain
     Dosage: 800 MILLIGRAM, TID
     Route: 048
  9. ORTHO CYCLEN [Concomitant]
     Active Substance: ETHINYL ESTRADIOL\NORGESTIMATE
     Indication: Product used for unknown indication
     Dosage: 35-0.25 MCG-MG
     Route: 048
  10. CLOTRIMAZOLE [Concomitant]
     Active Substance: CLOTRIMAZOLE
     Indication: Product used for unknown indication
     Dosage: UNK
     Route: 065
  11. PROPRANOLOL HYDROCHLORIDE [Concomitant]
     Active Substance: PROPRANOLOL HYDROCHLORIDE
     Indication: Product used for unknown indication
     Dosage: 20 MILLIGRAM, QD
     Route: 048
  12. ALPRAZOLAM [Concomitant]
     Active Substance: ALPRAZOLAM
     Indication: Product used for unknown indication
     Dosage: 3 MILLIGRAM, QD
     Route: 065
  13. PRAZOSIN [Concomitant]
     Active Substance: PRAZOSIN
     Indication: Product used for unknown indication
     Dosage: 1 MILLIGRAM (NIGHT)
     Route: 065
  14. VALIUM [Concomitant]
     Active Substance: DIAZEPAM
     Indication: Product used for unknown indication
     Dosage: 10 MILLIGRAM
     Route: 065
  15. ZOLPIDEM TARTRATE [Concomitant]
     Active Substance: ZOLPIDEM TARTRATE
     Indication: Product used for unknown indication
     Dosage: 12.5 MILLIGRAM
     Route: 065
     Dates: start: 2025
  16. XANAX [Concomitant]
     Active Substance: ALPRAZOLAM
     Indication: Product used for unknown indication
     Dosage: UNK
     Route: 065
  17. ACETAMINOPHEN AND CODEINE [Concomitant]
     Active Substance: ACETAMINOPHEN\CODEINE PHOSPHATE
     Indication: Product used for unknown indication
     Dosage: UNK
     Route: 065
  18. OXYCODONE AND ACETAMINOPHEN [Concomitant]
     Active Substance: ACETAMINOPHEN\OXYCODONE HYDROCHLORIDE
     Indication: Product used for unknown indication
     Dosage: UNK, QD
     Route: 065
  19. ACETAMINOPHEN\HYDROCODONE [Concomitant]
     Active Substance: ACETAMINOPHEN\HYDROCODONE
     Indication: Product used for unknown indication
     Dosage: UNK
     Route: 065
  20. LORAZEPAM [Concomitant]
     Active Substance: LORAZEPAM
     Indication: Product used for unknown indication
     Dosage: 3 MILLIGRAM, QD
     Route: 065
  21. GABAPENTIN [Concomitant]
     Active Substance: GABAPENTIN
     Indication: Product used for unknown indication
     Dosage: 300 MILLIGRAM, BID
     Route: 048
  22. VARENICLINE [Concomitant]
     Active Substance: VARENICLINE
     Indication: Smoking cessation therapy
     Dosage: 1 MILLIGRAM, BID
     Route: 048
  23. HYDROXYZINE PAMOATE [Concomitant]
     Active Substance: HYDROXYZINE PAMOATE
     Indication: Product used for unknown indication
     Dosage: 50 MILLIGRAM, TID
     Route: 048
  24. DOXEPIN [Concomitant]
     Active Substance: DOXEPIN
     Indication: Depression
     Dosage: 25 MILLIGRAM, QD
     Route: 048

REACTIONS (17)
  - Hospitalisation [Recovered/Resolved]
  - Alveolar osteitis [Unknown]
  - Dental caries [Not Recovered/Not Resolved]
  - Tooth erosion [Not Recovered/Not Resolved]
  - Tooth fracture [Unknown]
  - Tooth abscess [Unknown]
  - Tooth infection [Unknown]
  - Urinary retention [Unknown]
  - Gingivitis [Unknown]
  - Toothache [Unknown]
  - Wrong technique in product usage process [Unknown]
  - Insomnia [Not Recovered/Not Resolved]
  - Anxiety [Unknown]
  - Otitis externa [Unknown]
  - Fatigue [Unknown]
  - Substance abuse [Recovered/Resolved]
  - Drug withdrawal syndrome [Recovered/Resolved]

NARRATIVE: CASE EVENT DATE: 20060101
